FAERS Safety Report 15529321 (Version 1)
Quarter: 2018Q4

REPORT INFORMATION
  Report Type: Report from Study
  Country: US (occurrence: US)
  Receive Date: 20181018
  Receipt Date: 20181018
  Transmission Date: 20190205
  Serious: No
  Sender: FDA-Public Use
  Company Number: US-AMGEN-USASL2018142686

PATIENT
  Age: 71 Year
  Sex: Male

DRUGS (2)
  1. PLAVIX [Concomitant]
     Active Substance: CLOPIDOGREL BISULFATE
     Dosage: UNK
     Route: 065
     Dates: start: 201805
  2. REPATHA [Suspect]
     Active Substance: EVOLOCUMAB
     Indication: HYPERCHOLESTEROLAEMIA
     Dosage: 140 MG, Q2WK
     Route: 065

REACTIONS (10)
  - Nervousness [Unknown]
  - Feeling jittery [Unknown]
  - Irritability [Unknown]
  - Cough [Unknown]
  - Dyspnoea [Unknown]
  - Hypertension [Unknown]
  - Injection site bruising [Unknown]
  - Rhinorrhoea [Unknown]
  - Heart rate increased [Unknown]
  - Injection site haemorrhage [Unknown]

NARRATIVE: CASE EVENT DATE: 2018
